FAERS Safety Report 10689301 (Version 1)
Quarter: 2014Q4

REPORT INFORMATION
  Report Type: Spontaneous
  Country: GB (occurrence: None)
  Receive Date: 20141231
  Receipt Date: 20141231
  Transmission Date: 20150529
  Serious: Yes (Hospitalization, Disabling, Other)
  Sender: FDA-Public Use
  Company Number: 2014JUB00224

PATIENT
  Age: 63 Year
  Sex: Female

DRUGS (1)
  1. ALENDRONATE (ALENDRONATE) UNKNOWN [Suspect]
     Active Substance: ALENDRONATE SODIUM
     Indication: OSTEOPOROSIS

REACTIONS (8)
  - Impaired healing [None]
  - Mobility decreased [None]
  - Nerve root injury sacral [None]
  - Fall [None]
  - Surgical failure [None]
  - Pelvic fracture [None]
  - Pathological fracture [None]
  - Femoral neck fracture [None]
